FAERS Safety Report 11914498 (Version 1)
Quarter: 2016Q1

REPORT INFORMATION
  Report Type: Spontaneous
  Country: US (occurrence: US)
  Receive Date: 20160113
  Receipt Date: 20160113
  Transmission Date: 20160526
  Serious: No
  Sender: FDA-Public Use
  Company Number: GXBR2015US002208

PATIENT
  Age: 64 Year
  Sex: Male
  Weight: 106.58 kg

DRUGS (3)
  1. ATENOLOL TABLETS USP [Suspect]
     Active Substance: ATENOLOL
     Dosage: 25 MG, (1 TABLET IN MORNING AND HALF A TABLET AT NIGHT
     Route: 048
  2. LORAZEPAM. [Concomitant]
     Active Substance: LORAZEPAM
     Indication: ANXIETY
     Dosage: UNK DF, UNK
     Route: 065
  3. ATENOLOL TABLETS USP [Suspect]
     Active Substance: ATENOLOL
     Indication: HYPERTENSION
     Dosage: 25 MG, (2 IN MORNING ANT 1 AT NIGHT)
     Route: 048
     Dates: start: 20150926, end: 20150927

REACTIONS (5)
  - Influenza like illness [Recovered/Resolved]
  - Headache [Recovered/Resolved]
  - Nausea [Recovered/Resolved]
  - Pain [Recovered/Resolved]
  - Intentional underdose [Not Recovered/Not Resolved]

NARRATIVE: CASE EVENT DATE: 20150926
